FAERS Safety Report 7527296-1 (Version None)
Quarter: 2011Q2

REPORT INFORMATION
  Report Type: 
  Country: None (occurrence: None)
  Receive Date: 20110603
  Receipt Date: 20110603
  Transmission Date: 20111010
  Serious: Yes (Other)
  Sender: FDA-Public Use
  Company Number: None

PATIENT
  Age: 27 Year
  Sex: Female

DRUGS (1)
  1. LANTUS [Suspect]
     Indication: DIABETES MELLITUS
     Dosage: USE AS DIRECTED SUBCUTANEOUS
     Route: 058
     Dates: start: 20110423, end: 20110519

REACTIONS (4)
  - HEADACHE [None]
  - FATIGUE [None]
  - PRODUCT PHYSICAL ISSUE [None]
  - NAUSEA [None]
